FAERS Safety Report 8356272 (Version 4)
Quarter: 2013Q3

REPORT INFORMATION
  Report Type: Report from Study
  Country: AU (occurrence: AU)
  Receive Date: 20120126
  Receipt Date: 20130701
  Transmission Date: 20140515
  Serious: Yes (Death, Other)
  Sender: FDA-Public Use
  Company Number: AU-ROCHE-1033325

PATIENT
  Age: 69 Year
  Sex: Male

DRUGS (2)
  1. ACTEMRA [Suspect]
     Indication: RHEUMATOID ARTHRITIS
     Route: 065
     Dates: start: 20101126
  2. PREDNISOLONE [Concomitant]

REACTIONS (7)
  - Death [Fatal]
  - Renal failure acute [Unknown]
  - Multi-organ failure [Unknown]
  - Sepsis [Unknown]
  - Arthritis bacterial [Unknown]
  - Deep vein thrombosis [Unknown]
  - Pneumonia [Unknown]
